FAERS Safety Report 17252670 (Version 1)
Quarter: 2020Q1

REPORT INFORMATION
  Report Type: Spontaneous
  Country: US (occurrence: US)
  Receive Date: 20200109
  Receipt Date: 20200109
  Transmission Date: 20200409
  Serious: No
  Sender: FDA-Public Use
  Company Number: US-OPTINOSE US, INC-2019OPT000990

PATIENT
  Sex: Female
  Weight: 99.88 kg

DRUGS (4)
  1. XHANCE [Suspect]
     Active Substance: FLUTICASONE PROPIONATE
     Dosage: EVERY OTHER DAY
     Route: 045
     Dates: start: 201910, end: 201910
  2. XHANCE [Suspect]
     Active Substance: FLUTICASONE PROPIONATE
     Dosage: ONCE A DAY
     Route: 045
     Dates: start: 201909
  3. XHANCE [Suspect]
     Active Substance: FLUTICASONE PROPIONATE
     Indication: SINUS CONGESTION
     Route: 045
     Dates: start: 2019, end: 201909
  4. XHANCE [Suspect]
     Active Substance: FLUTICASONE PROPIONATE
     Dosage: EVERY THREE DAYS
     Route: 045
     Dates: start: 201910, end: 201910

REACTIONS (4)
  - Dry skin [Recovering/Resolving]
  - Nasal inflammation [Recovered/Resolved]
  - Product use issue [Unknown]
  - Product use in unapproved indication [Unknown]

NARRATIVE: CASE EVENT DATE: 2019
